FAERS Safety Report 9356406 (Version 2)
Quarter: 2014Q1

REPORT INFORMATION
  Report Type: Spontaneous
  Country: US (occurrence: US)
  Receive Date: 20130619
  Receipt Date: 20140207
  Transmission Date: 20141002
  Serious: Yes (Hospitalization)
  Sender: FDA-Public Use
  Company Number: US-B.I. PHARMACEUTICALS,INC./RIDGEFIELD-2011-BP-13521BP

PATIENT
  Age: 84 Year
  Sex: Male
  Weight: 78.02 kg

DRUGS (12)
  1. PRADAXA [Suspect]
     Indication: ATRIAL FIBRILLATION
     Dosage: 300 MG
     Route: 048
     Dates: start: 20110518, end: 20110519
  2. PRADAXA [Suspect]
     Indication: THERAPY CHANGE
     Dates: start: 20110908
  3. LIPITOR [Concomitant]
     Indication: BLOOD CHOLESTEROL INCREASED
     Route: 048
  4. AVODART [Concomitant]
     Indication: PROSTATIC DISORDER
     Route: 048
  5. LISINOPRIL [Concomitant]
     Indication: BLOOD CHOLESTEROL INCREASED
     Dosage: 40 MG
     Route: 048
  6. LISINOPRIL [Concomitant]
     Indication: HYPERTENSION
  7. HYDROCHLOROTHIAZIDE [Concomitant]
  8. AMLODIPINE [Concomitant]
  9. WARFARIN [Concomitant]
  10. TAMSULOSIN HCL [Concomitant]
  11. AZITHROMYCIN [Concomitant]
  12. DOXYCYCLINE [Concomitant]

REACTIONS (3)
  - Gastrointestinal haemorrhage [Unknown]
  - Blood urine present [Recovered/Resolved]
  - Haemorrhage urinary tract [Recovered/Resolved]
